FAERS Safety Report 26042698 (Version 1)
Quarter: 2025Q4

REPORT INFORMATION
  Report Type: Spontaneous
  Country: US (occurrence: US)
  Receive Date: 20251113
  Receipt Date: 20251113
  Transmission Date: 20260117
  Serious: Yes (Death, Hospitalization)
  Sender: AMGEN
  Company Number: US-AMGEN-USASP2025218317

PATIENT
  Age: 52 Year
  Sex: Female

DRUGS (2)
  1. PREDNISONE [Suspect]
     Active Substance: PREDNISONE
     Indication: Product used for unknown indication
     Dosage: 20 MILLIGRAM X 5 DAYS
     Route: 048
  2. AZITHROMYCIN [Concomitant]
     Active Substance: AZITHROMYCIN
     Indication: Productive cough
     Dosage: UNK
     Route: 065

REACTIONS (20)
  - Death [Fatal]
  - Body temperature increased [Unknown]
  - Heart rate increased [Unknown]
  - C-reactive protein increased [Unknown]
  - Red blood cell sedimentation rate increased [Unknown]
  - Empyema [Unknown]
  - Pulmonary embolism [Unknown]
  - Infectious pleural effusion [Unknown]
  - Deep vein thrombosis [Unknown]
  - Leukocytosis [Unknown]
  - Pneumothorax [Unknown]
  - Streptococcal infection [Unknown]
  - Candida infection [Unknown]
  - Subcutaneous emphysema [Unknown]
  - Bronchopleural fistula [Unknown]
  - Corynebacterium infection [Unknown]
  - Cardiac arrest [Unknown]
  - Blood pressure increased [Unknown]
  - Sepsis [Unknown]
  - Therapy non-responder [Unknown]
